FAERS Safety Report 7462531 (Version 5)
Quarter: 2012Q4

REPORT INFORMATION
  Report Type: Report from Study
  Country: NL (occurrence: NL)
  Receive Date: 20100709
  Receipt Date: 20120904
  Transmission Date: 20130627
  Serious: Yes (Death, Life-Threatening, Hospitalization)
  Sender: FDA-Public Use
  Company Number: PHHO2010NL10123

PATIENT
  Age: 58 Year
  Sex: Male
  Weight: 70 kg

DRUGS (17)
  1. MYCOPHENOLIC ACID [Suspect]
     Indication: STEM CELL TRANSPLANT
     Dosage: 750 mg, TID
     Route: 042
     Dates: start: 20100611
  2. PREDNISOLONE [Suspect]
     Indication: STEM CELL TRANSPLANT
     Dosage: 75 mg, BID
     Route: 042
     Dates: start: 20100611
  3. SANDIMMUN [Suspect]
     Indication: STEM CELL TRANSPLANT
     Dosage: 450 mg, / day
     Route: 042
     Dates: start: 20100609, end: 20100616
  4. SANDIMMUN [Suspect]
     Dosage: 150 mg, / day
     Route: 042
     Dates: start: 20100617, end: 20100618
  5. SANDIMMUN [Suspect]
     Dosage: 200 mg/day
     Route: 042
     Dates: start: 20100619, end: 20100621
  6. SANDIMMUN [Suspect]
     Dosage: 250 mg/day
     Route: 042
     Dates: start: 20100622, end: 20100622
  7. ETANERCEPT [Concomitant]
     Indication: GRAFT VERSUS HOST DISEASE
     Dosage: 25 mg, QW2
     Route: 058
     Dates: start: 20100623, end: 20100702
  8. VANCOMYCIN [Concomitant]
     Indication: INFECTION
     Dosage: UNK
     Dates: start: 20100626, end: 20100702
  9. ACICLOVIR [Concomitant]
     Indication: PROPHYLAXIS
     Dosage: 350 mg, DD
     Route: 042
     Dates: start: 20100611, end: 20100702
  10. ALENDRONIC ACID [Concomitant]
     Indication: PROPHYLAXIS
     Dosage: 70 mg, UNK
     Route: 048
     Dates: start: 20100617, end: 20100617
  11. AMLODIPINE [Concomitant]
     Indication: HYPERTENSION
     Dosage: 5 mg, UNK
     Route: 048
     Dates: start: 20100611, end: 20100618
  12. ATENOLOL [Concomitant]
     Indication: HYPERTENSION
     Dosage: 50 mg, UNK
     Route: 048
     Dates: start: 20100611, end: 20100614
  13. INSULIN [Concomitant]
     Indication: DIABETES MELLITUS
     Dosage: 4000 g, on demand
     Route: 042
     Dates: start: 20100616, end: 20100702
  14. CIPROFLOXACIN [Concomitant]
     Indication: PROPHYLAXIS
     Dosage: 400 mg, BID
     Route: 042
     Dates: start: 20100614, end: 20100629
  15. COTRIMOXAZOL [Concomitant]
     Indication: PROPHYLAXIS
     Dosage: 480 mg, UNK
     Route: 042
     Dates: start: 20100611, end: 20100629
  16. ESOMEPRAZOLE [Concomitant]
     Indication: PROPHYLAXIS
     Dosage: 40 mg, UNK
     Route: 042
     Dates: start: 20100616, end: 20100702
  17. VORICONAZOLE [Concomitant]
     Indication: PROPHYLAXIS
     Dosage: 400 mg, UNK
     Route: 017
     Dates: start: 20100622, end: 20100702

REACTIONS (11)
  - Graft versus host disease [Fatal]
  - Gastroenteritis bacterial [Fatal]
  - Respiratory failure [Fatal]
  - Abdominal sepsis [Fatal]
  - Renal failure [Fatal]
  - Hypotension [Fatal]
  - Diarrhoea [Fatal]
  - Lung infiltration [Fatal]
  - Haematochezia [Fatal]
  - General physical health deterioration [Fatal]
  - Multi-organ failure [Fatal]
